FAERS Safety Report 13955884 (Version 5)
Quarter: 2018Q4

REPORT INFORMATION
  Report Type: Spontaneous
  Country: US (occurrence: US)
  Receive Date: 20170911
  Receipt Date: 20181207
  Transmission Date: 20190204
  Serious: Yes (Hospitalization, Other)
  Sender: FDA-Public Use
  Company Number: US-DSJP-DSU-2017-136142

PATIENT

DRUGS (1)
  1. BENICAR [Suspect]
     Active Substance: OLMESARTAN MEDOXOMIL
     Indication: HYPERTENSION
     Dosage: 40 MG, QD
     Route: 048
     Dates: start: 20080701, end: 20170201

REACTIONS (6)
  - Inflammatory bowel disease [Not Recovered/Not Resolved]
  - Cholelithiasis [Recovered/Resolved]
  - Gastrooesophageal reflux disease [Recovered/Resolved]
  - Sprue-like enteropathy [Recovering/Resolving]
  - Abdominal hernia [Unknown]
  - Haemorrhoids [Unknown]

NARRATIVE: CASE EVENT DATE: 20090301
